FAERS Safety Report 8530614-9 (Version None)
Quarter: 2012Q3

REPORT INFORMATION
  Report Type: 
  Country: None (occurrence: None)
  Receive Date: 20120723
  Receipt Date: 20120711
  Transmission Date: 20120928
  Serious: Yes (Hospitalization)
  Sender: FDA-Public Use
  Company Number: JP-VERTEX PHARMACEUTICALS INC.-AE-2012-008342

PATIENT
  Age: 66 Year
  Sex: Male

DRUGS (14)
  1. RIBAVIRIN [Concomitant]
     Route: 048
     Dates: start: 20120426, end: 20120427
  2. RIBAVIRIN [Concomitant]
     Route: 048
     Dates: start: 20120428, end: 20120429
  3. TELAVIC (TELAPREVIR) [Suspect]
     Indication: HEPATITIS C
     Route: 048
     Dates: start: 20120411, end: 20120418
  4. PEG-INTRON [Concomitant]
     Route: 058
     Dates: start: 20120530
  5. PEG-INTRON [Concomitant]
     Indication: HEPATITIS C
     Route: 058
     Dates: start: 20120411, end: 20120425
  6. RIBAVIRIN [Concomitant]
     Route: 048
     Dates: start: 20120515, end: 20120612
  7. RIBAVIRIN [Concomitant]
     Route: 048
     Dates: start: 20120613, end: 20120621
  8. RIBAVIRIN [Concomitant]
     Route: 048
     Dates: start: 20120430, end: 20120502
  9. RIBAVIRIN [Concomitant]
     Route: 048
     Dates: start: 20120622
  10. PEG-INTRON [Concomitant]
     Route: 058
     Dates: start: 20120523, end: 20120523
  11. ALLOPURINOL [Concomitant]
     Route: 048
     Dates: start: 20120418
  12. TELAVIC (TELAPREVIR) [Suspect]
     Route: 048
     Dates: start: 20120419, end: 20120503
  13. PEG-INTRON [Concomitant]
     Route: 058
     Dates: start: 20120510, end: 20120516
  14. RIBAVIRIN [Concomitant]
     Indication: HEPATITIS C
     Route: 048
     Dates: start: 20120411, end: 20120425

REACTIONS (4)
  - RENAL DISORDER [None]
  - NAUSEA [None]
  - DECREASED APPETITE [None]
  - ANAEMIA [None]
